FAERS Safety Report 11304347 (Version 1)
Quarter: 2015Q3

REPORT INFORMATION
  Report Type: Spontaneous
  Country: US (occurrence: US)
  Receive Date: 20150723
  Receipt Date: 20150723
  Transmission Date: 20151125
  Serious: No
  Sender: FDA-Public Use
  Company Number: US-JNJFOC-20150315018

PATIENT
  Age: 69 Year
  Sex: Male
  Weight: 72.58 kg

DRUGS (1)
  1. ZYRTEC [Suspect]
     Active Substance: CETIRIZINE HYDROCHLORIDE
     Indication: SEASONAL ALLERGY
     Dosage: 1/2 TABLET
     Route: 048
     Dates: start: 20150314

REACTIONS (2)
  - Wrong technique in product usage process [Unknown]
  - Wrong patient received medication [Unknown]
